FAERS Safety Report 9664342 (Version 2)
Quarter: 2013Q4

REPORT INFORMATION
  Report Type: Spontaneous
  Country: GB (occurrence: GB)
  Receive Date: 20131101
  Receipt Date: 20131217
  Transmission Date: 20140711
  Serious: Yes (Other)
  Sender: FDA-Public Use
  Company Number: GB-TEVA-439972ISR

PATIENT
  Age: 60 Year
  Sex: Male

DRUGS (4)
  1. CYANOCOBALAMIN [Suspect]
  2. CALCIUM [Suspect]
  3. ASPIRIN [Suspect]
     Dosage: LOW DOSE
  4. SIMVASTATIN [Suspect]
     Indication: HYPERCHOLESTEROLAEMIA
     Route: 048

REACTIONS (9)
  - Deafness [Unknown]
  - Acoustic neuroma [Unknown]
  - Dysphagia [Unknown]
  - Throat lesion [Unknown]
  - Tinnitus [Unknown]
  - Chest pain [Unknown]
  - Dyspnoea [Unknown]
  - Paraesthesia [Unknown]
  - Inguinal hernia [Unknown]
